FAERS Safety Report 5819031-X (Version None)
Quarter: 2008Q3

REPORT INFORMATION
  Report Type: 
  Country: None (occurrence: None)
  Receive Date: 20080723
  Receipt Date: 20080428
  Transmission Date: 20090109
  Serious: No
  Sender: FDA-Public Use
  Company Number: US-BAYER-200822116NA

PATIENT

DRUGS (1)
  1. MIRENA [Suspect]

REACTIONS (1)
  - NO ADVERSE EVENT [None]
